FAERS Safety Report 4743445-2 (Version None)
Quarter: 2005Q3

REPORT INFORMATION
  Report Type: 
  Country: None (occurrence: None)
  Receive Date: 20050809
  Receipt Date: 20050802
  Transmission Date: 20060218
  Serious: Yes (Other)
  Sender: FDA-Public Use
  Company Number: 2005-04-1905

PATIENT
  Age: 58 Year
  Sex: Female

DRUGS (5)
  1. CLARITIN [Suspect]
     Indication: RHINITIS ALLERGIC
     Dosage: 10 MG ORAL
     Route: 048
     Dates: start: 20050407, end: 20050416
  2. EPINASTINE HCL [Suspect]
  3. DIOVAN TABLETS [Concomitant]
  4. ACETANOL CAPSULES [Concomitant]
  5. NORVASC [Concomitant]

REACTIONS (1)
  - URINARY RETENTION [None]
